FAERS Safety Report 12691444 (Version 2)
Quarter: 2016Q4

REPORT INFORMATION
  Report Type: Spontaneous
  Country: IE (occurrence: IE)
  Receive Date: 20160826
  Receipt Date: 20161107
  Transmission Date: 20170207
  Serious: Yes (Other)
  Sender: FDA-Public Use
  Company Number: IE-REGENERON PHARMACEUTICALS, INC.-2016-20854

PATIENT

DRUGS (2)
  1. EYLEA [Suspect]
     Active Substance: AFLIBERCEPT
     Indication: NEOVASCULAR AGE-RELATED MACULAR DEGENERATION
     Dosage: LOADING DOSE, SIX INJECTIONS
     Route: 031
  2. EYLEA [Suspect]
     Active Substance: AFLIBERCEPT
     Dosage: 5 WEEKS INTERVAL, THREE DOSES RECEIVED
     Route: 031

REACTIONS (4)
  - Retinal haemorrhage [Unknown]
  - Visual acuity reduced [Unknown]
  - Product use issue [Unknown]
  - Macular oedema [Unknown]
